FAERS Safety Report 25154076 (Version 1)
Quarter: 2025Q2

REPORT INFORMATION
  Report Type: Other
  Country: FR (occurrence: FR)
  Receive Date: 20250403
  Receipt Date: 20250403
  Transmission Date: 20250717
  Serious: Yes (Life-Threatening)
  Sender: ZYDUS PHARM
  Company Number: None

PATIENT

DRUGS (3)
  1. VALSARTAN [Interacting]
     Active Substance: VALSARTAN
     Indication: Hypertension
     Route: 048
     Dates: start: 20211007, end: 20250202
  2. LERCANIDIPINE [Interacting]
     Active Substance: LERCANIDIPINE
     Indication: Hypertension
     Route: 048
     Dates: start: 20210601, end: 20250203
  3. VOLTARENE (DICLOFENAC SODIUM) [Interacting]
     Active Substance: DICLOFENAC SODIUM
     Indication: Procedural pain
     Route: 048
     Dates: start: 20250131, end: 20250203

REACTIONS (4)
  - Renal tubular necrosis [Recovered/Resolved]
  - Acute kidney injury [Recovered/Resolved]
  - Acute kidney injury [Recovered/Resolved]
  - Acute kidney injury [Recovered/Resolved]

NARRATIVE: CASE EVENT DATE: 20250203
